FAERS Safety Report 12269516 (Version 1)
Quarter: 2016Q2

REPORT INFORMATION
  Report Type: Spontaneous
  Country: US (occurrence: US)
  Receive Date: 20160414
  Receipt Date: 20160414
  Transmission Date: 20160815
  Serious: Yes (Hospitalization, Other)
  Sender: FDA-Public Use
  Company Number: US-JNJFOC-20160406510

PATIENT
  Age: 66 Year
  Sex: Female

DRUGS (1)
  1. INFLIXIMAB, RECOMBINANT [Suspect]
     Active Substance: INFLIXIMAB
     Indication: RHEUMATOID ARTHRITIS
     Route: 042

REACTIONS (4)
  - Staphylococcal infection [Recovering/Resolving]
  - Eye infection fungal [Recovering/Resolving]
  - Ophthalmic herpes simplex [Recovering/Resolving]
  - Meningitis [Recovering/Resolving]
